FAERS Safety Report 24064781 (Version 1)
Quarter: 2024Q3

REPORT INFORMATION
  Report Type: Spontaneous
  Country: US (occurrence: None)
  Receive Date: 20240708
  Receipt Date: 20240708
  Transmission Date: 20241016
  Serious: Yes (Disabling)
  Sender: Public
  Company Number: None

PATIENT
  Age: 71 Year
  Sex: Female
  Weight: 49.5 kg

DRUGS (11)
  1. EVENITY [Suspect]
     Active Substance: ROMOSOZUMAB-AQQG
     Indication: Osteoporosis
     Dates: start: 20240509
  2. IPRATROPIUM BROMIDE [Concomitant]
     Active Substance: IPRATROPIUM BROMIDE\IPRATROPIUM BROMIDE ANHYDROUS
  3. Evenity [Concomitant]
  4. CEFUROXIME [Concomitant]
  5. PREDNISONE [Concomitant]
  6. FLONASE [Concomitant]
     Active Substance: FLUTICASONE PROPIONATE
  7. Citrical petitie plus D [Concomitant]
  8. BORON [Concomitant]
     Active Substance: BORON
  9. MAGNESIUM OXIDE [Concomitant]
     Active Substance: MAGNESIUM OXIDE
  10. Centrum silver [Concomitant]
  11. Vit K2 [Concomitant]

REACTIONS (5)
  - Fatigue [None]
  - Headache [None]
  - Dyspnoea [None]
  - Heart rate increased [None]
  - Cough [None]

NARRATIVE: CASE EVENT DATE: 20240705
